FAERS Safety Report 5330238-0 (Version None)
Quarter: 2007Q2

REPORT INFORMATION
  Report Type: 
  Country: None (occurrence: None)
  Receive Date: 20070521
  Receipt Date: 20070515
  Transmission Date: 20071010
  Serious: Yes (Other)
  Sender: FDA-Public Use
  Company Number: US-BRISTOL-MYERS SQUIBB COMPANY-13784822

PATIENT
  Age: 71 Year
  Sex: Male

DRUGS (2)
  1. TEQUIN [Suspect]
     Dates: start: 20060307, end: 20060314
  2. GLYBURIDE [Concomitant]
     Indication: DIABETES MELLITUS NON-INSULIN-DEPENDENT
     Route: 048

REACTIONS (1)
  - HYPERGLYCAEMIA [None]
